FAERS Safety Report 20438266 (Version 1)
Quarter: 2022Q1

REPORT INFORMATION
  Report Type: Other
  Country: US (occurrence: None)
  Receive Date: 20220207
  Receipt Date: 20220207
  Transmission Date: 20220423
  Serious: Yes (Other)
  Sender: FDA-Public Use
  Company Number: US-ROCHE-2655710

PATIENT
  Age: 32 Year
  Sex: Female
  Weight: 118.04 kg

DRUGS (18)
  1. OCREVUS [Suspect]
     Active Substance: OCRELIZUMAB
     Indication: Relapsing-remitting multiple sclerosis
     Route: 042
     Dates: start: 20180619, end: 201906
  2. OCREVUS [Suspect]
     Active Substance: OCRELIZUMAB
     Dosage: INFUSE 300 MG ON DAY 1 AND DAY 15.
     Route: 042
  3. OCREVUS [Suspect]
     Active Substance: OCRELIZUMAB
     Route: 042
  4. COVID-19 VACCINE NOS [Suspect]
     Active Substance: COVID-19 VACCINE NOS
     Indication: Product use in unapproved indication
     Route: 065
  5. OMEPRAZOLE [Concomitant]
     Active Substance: OMEPRAZOLE
     Indication: Gastrooesophageal reflux disease
     Route: 048
  6. LISINOPRIL [Concomitant]
     Active Substance: LISINOPRIL
     Indication: Hypertension
     Route: 048
  7. SINGULAIR [Concomitant]
     Active Substance: MONTELUKAST SODIUM
     Indication: Hypersensitivity
     Route: 048
  8. HYDROXYCHLOROQUINE [Concomitant]
     Active Substance: HYDROXYCHLOROQUINE
     Dates: start: 2011
  9. ACETAMINOPHEN AND CODEINE [Concomitant]
     Active Substance: ACETAMINOPHEN\CODEINE PHOSPHATE
     Indication: Muscle spasms
     Dosage: 1 TABLET EVERY 8 HOURS AS NEEDED; ONGOING: YES
     Route: 048
     Dates: start: 202007
  10. CETIRIZINE [Concomitant]
     Active Substance: CETIRIZINE HYDROCHLORIDE
     Indication: Hypersensitivity
     Route: 048
     Dates: start: 2020
  11. AIMOVIG [Concomitant]
     Active Substance: ERENUMAB-AOOE
     Indication: Migraine
     Route: 058
     Dates: start: 2019
  12. BENADRYL [Concomitant]
     Active Substance: DIPHENHYDRAMINE HYDROCHLORIDE
     Indication: Product use in unapproved indication
     Route: 042
  13. SOLU-MEDROL [Concomitant]
     Active Substance: METHYLPREDNISOLONE SODIUM SUCCINATE
     Indication: Product use in unapproved indication
     Route: 042
  14. CONTRAVE [Concomitant]
     Active Substance: BUPROPION HYDROCHLORIDE\NALTREXONE HYDROCHLORIDE
  15. CIMETIDINE [Concomitant]
     Active Substance: CIMETIDINE
  16. ZOFRAN [Concomitant]
     Active Substance: ONDANSETRON HYDROCHLORIDE
  17. ZYRTEC (UNITED STATES) [Concomitant]
  18. AZELASTINE [Concomitant]
     Active Substance: AZELASTINE

REACTIONS (5)
  - Breast mass [Not Recovered/Not Resolved]
  - Multiple sclerosis relapse [Not Recovered/Not Resolved]
  - COVID-19 [Recovered/Resolved]
  - Postoperative wound infection [Unknown]
  - Illness [Unknown]

NARRATIVE: CASE EVENT DATE: 20200615
